FAERS Safety Report 5684283-6 (Version None)
Quarter: 2008Q1

REPORT INFORMATION
  Report Type: 
  Country: None (occurrence: None)
  Receive Date: 20080328
  Receipt Date: 20080327
  Transmission Date: 20080703
  Serious: Yes (Other)
  Sender: FDA-Public Use
  Company Number: A0717775A

PATIENT
  Age: 60 Year
  Sex: Female
  Weight: 79 kg

DRUGS (4)
  1. ALLI [Suspect]
     Indication: WEIGHT CONTROL
     Dates: start: 20080325, end: 20080325
  2. ENDURON [Concomitant]
     Indication: HYPERTENSION
  3. TRANXENE [Concomitant]
     Indication: ANGER
  4. PROZAC [Concomitant]
     Indication: ANGER

REACTIONS (6)
  - CONSTIPATION [None]
  - DEFAECATION URGENCY [None]
  - DIARRHOEA [None]
  - FAECES DISCOLOURED [None]
  - RECTAL HAEMORRHAGE [None]
  - STEATORRHOEA [None]
